FAERS Safety Report 5705045-7 (Version None)
Quarter: 2008Q2

REPORT INFORMATION
  Report Type: 
  Country: None (occurrence: None)
  Receive Date: 20080414
  Receipt Date: 20080404
  Transmission Date: 20081010
  Serious: Yes (Hospitalization, Disabling, Other)
  Sender: FDA-Public Use
  Company Number: CZ-PFIZER INC-2008030723

PATIENT
  Sex: Female

DRUGS (5)
  1. SORTIS [Suspect]
     Indication: ACUTE MYOCARDIAL INFARCTION
     Route: 048
     Dates: start: 20080222, end: 20080317
  2. FENOFIBRATE [Suspect]
     Indication: DYSLIPIDAEMIA
     Route: 048
     Dates: start: 20071029, end: 20071114
  3. FENOFIBRATE [Suspect]
     Route: 048
     Dates: start: 20071114, end: 20080317
  4. SIMVACARD [Concomitant]
     Route: 048
     Dates: start: 20020315, end: 20050727
  5. SORTIS [Concomitant]
     Route: 048
     Dates: start: 20050727, end: 20071001

REACTIONS (4)
  - IMMOBILE [None]
  - MUSCULAR WEAKNESS [None]
  - MYOPATHY [None]
  - RHABDOMYOLYSIS [None]
